FAERS Safety Report 4956370-9 (Version None)
Quarter: 2006Q1

REPORT INFORMATION
  Report Type: 
  Country: None (occurrence: None)
  Receive Date: 20060329
  Receipt Date: 20060221
  Transmission Date: 20060701
  Serious: Yes (Death, Hospitalization)
  Sender: FDA-Public Use
  Company Number: US-BRISTOL-MYERS SQUIBB COMPANY-13289988

PATIENT
  Age: 62 Year
  Sex: Male

DRUGS (1)
  1. TAXOL [Suspect]
     Indication: LUNG NEOPLASM MALIGNANT
     Route: 042
     Dates: start: 20060214, end: 20060214

REACTIONS (3)
  - CONFUSIONAL STATE [None]
  - DEATH [None]
  - NEUTROPENIA [None]
